FAERS Safety Report 8386532-2 (Version None)
Quarter: 2012Q2

REPORT INFORMATION
  Report Type: 
  Country: None (occurrence: None)
  Receive Date: 20120525
  Receipt Date: 20110516
  Transmission Date: 20120825
  Serious: No
  Sender: FDA-Public Use
  Company Number: US-GLAXOSMITHKLINE-A0927525A

PATIENT
  Age: 14 Year
  Sex: Male
  Weight: 36.8 kg

DRUGS (1)
  1. VERAMYST [Suspect]
     Indication: RHINITIS ALLERGIC
     Dosage: 1SPR SINGLE DOSE
     Route: 045
     Dates: start: 20110510, end: 20110510

REACTIONS (1)
  - AGEUSIA [None]
